FAERS Safety Report 9163513 (Version 2)
Quarter: 2013Q2

REPORT INFORMATION
  Report Type: Spontaneous
  Country: JP (occurrence: JP)
  Receive Date: 20130314
  Receipt Date: 20130416
  Transmission Date: 20140414
  Serious: Yes (Other)
  Sender: FDA-Public Use
  Company Number: JP-PFIZER INC-2013083339

PATIENT
  Age: 56 Year
  Sex: Female

DRUGS (1)
  1. CELECOX [Suspect]
     Indication: ANALGESIC THERAPY
     Dosage: 200 MG, 2X/DAY (AFTER BREAKFAST AND DINNER)
     Route: 048
     Dates: start: 20130301

REACTIONS (1)
  - Generalised erythema [Unknown]
